FAERS Safety Report 7660277-6 (Version None)
Quarter: 2011Q3

REPORT INFORMATION
  Report Type: 
  Country: None (occurrence: None)
  Receive Date: 20110805
  Receipt Date: 20110802
  Transmission Date: 20111222
  Serious: Yes (Disabling, Other)
  Sender: FDA-Public Use
  Company Number: US-BAYER-2011-054265

PATIENT
  Age: 24 Year
  Sex: Female
  Weight: 71.655 kg

DRUGS (1)
  1. MIRENA [Suspect]
     Indication: CONTRACEPTION
     Dosage: 20 MCG/24HR, CONT
     Dates: start: 20110613, end: 20110711

REACTIONS (2)
  - DEVICE DISLOCATION [None]
  - PROCEDURAL PAIN [None]
